FAERS Safety Report 9010459 (Version 1)
Quarter: 2013Q1

REPORT INFORMATION
  Report Type: Spontaneous
  Country: IN (occurrence: IN)
  Receive Date: 20130109
  Receipt Date: 20130109
  Transmission Date: 20140127
  Serious: Yes (Other)
  Sender: FDA-Public Use
  Company Number: IN-ROCHE-1176275

PATIENT
  Age: 32 Year
  Sex: Female
  Weight: 42 kg

DRUGS (1)
  1. EXXURA [Suspect]
     Indication: PRODUCT USED FOR UNKNOWN INDICATION
     Route: 065

REACTIONS (5)
  - Urticaria [Unknown]
  - Rash generalised [Unknown]
  - Syncope [Unknown]
  - Hypotension [Unknown]
  - Angioedema [Unknown]
